FAERS Safety Report 9949564 (Version 1)
Quarter: 2014Q1

REPORT INFORMATION
  Report Type: Report from Study
  Country: US (occurrence: US)
  Receive Date: 20140304
  Receipt Date: 20140304
  Transmission Date: 20141002
  Serious: No
  Sender: FDA-Public Use
  Company Number: US-ABBVIE-13P-163-1068529-00

PATIENT
  Age: 50 Year
  Sex: Male

DRUGS (4)
  1. HUMIRA [Suspect]
     Indication: PSORIASIS
     Dosage: LOADING DOSE
     Dates: start: 20130319, end: 20130319
  2. HUMIRA [Suspect]
  3. LISINOPRIL [Concomitant]
     Indication: HYPERTENSION
     Dosage: 10 MG DAILY
  4. SIMVASTATIN [Concomitant]
     Indication: BLOOD CHOLESTEROL INCREASED

REACTIONS (1)
  - Sneezing [Not Recovered/Not Resolved]
